FAERS Safety Report 9551568 (Version 1)
Quarter: 2013Q3

REPORT INFORMATION
  Report Type: Spontaneous
  Country: US (occurrence: None)
  Receive Date: 20130923
  Receipt Date: 20130923
  Transmission Date: 20140515
  Serious: Yes (Hospitalization, Other)
  Sender: FDA-Public Use
  Company Number: None

PATIENT
  Age: 45 Year
  Sex: Female
  Weight: 51 kg

DRUGS (14)
  1. TEFLARO [Suspect]
     Indication: ENDOCARDITIS BACTERIAL
     Route: 042
     Dates: start: 20130808, end: 20130908
  2. TEFLARO [Suspect]
     Indication: STAPHYLOCOCCAL INFECTION
     Route: 042
     Dates: start: 20130808, end: 20130908
  3. DOCUSATE (COLACE) [Concomitant]
  4. DULOXETINE (CYMBALTA) [Concomitant]
  5. FAMOTIDINE (PEPCID) [Concomitant]
  6. FOLIC ACID [Concomitant]
  7. HEPARIN [Concomitant]
  8. LACTULOSE [Concomitant]
  9. LEVOTHYROXINE [Concomitant]
  10. MORPHINE CR (MORPHINE 12 HOUR EXTENDED RELEASE (MS CONTIN)) [Concomitant]
  11. MULTIVITAMIN [Concomitant]
  12. NICOTINE PATCH (NICODERM) [Concomitant]
  13. NICOTINE REMOVE PATCH PATCH (REMOVE TOPICAL MEDICATION) [Concomitant]
  14. NORTRIPTYLINE [Concomitant]

REACTIONS (1)
  - Neutropenia [None]
